FAERS Safety Report 4894963-8 (Version None)
Quarter: 2006Q1

REPORT INFORMATION
  Report Type: 
  Country: None (occurrence: None)
  Receive Date: 20060130
  Receipt Date: 20050503
  Transmission Date: 20060701
  Serious: No
  Sender: FDA-Public Use
  Company Number: US-BRISTOL-MYERS SQUIBB COMPANY-12976163

PATIENT
  Age: 55 Year
  Sex: Female
  Weight: 94 kg

DRUGS (1)
  1. GLUCOPHAGE [Suspect]

REACTIONS (1)
  - HYPERSENSITIVITY [None]
